FAERS Safety Report 4765526-X (Version None)
Quarter: 2005Q3

REPORT INFORMATION
  Report Type: 
  Country: None (occurrence: None)
  Receive Date: 20050906
  Receipt Date: 20050823
  Transmission Date: 20060218
  Serious: Yes (Hospitalization)
  Sender: FDA-Public Use
  Company Number: 2005118623

PATIENT
  Age: 43 Year
  Sex: Female

DRUGS (5)
  1. ZYRTEC [Suspect]
     Indication: RHINITIS ALLERGIC
     Dosage: 10 MG (1 IN 1 D), ORAL
     Route: 048
     Dates: start: 20050226
  2. CELTECT (OXATOMIDE) [Suspect]
     Indication: RHINITIS ALLERGIC
     Dosage: 60 MG (1 IN 1 D), ORAL
     Route: 048
     Dates: start: 20050309, end: 20050310
  3. BAYNAS (RAMATROBAN) [Suspect]
     Indication: RHINITIS ALLERGIC
     Dosage: 150 MG (1 IN 1 D), ORAL
     Route: 048
     Dates: start: 20050310
  4. FLOMOX (CEFCAPENE PIVOXIL HYDROCHLORIDE) [Suspect]
     Indication: SUBCUTANEOUS ABSCESS
     Dosage: 300 MG (1 IN 1 D), ORAL
     Route: 048
     Dates: start: 20050311
  5. TAMIFLU [Suspect]
     Indication: ILL-DEFINED DISORDER
     Dosage: 150 MG (1 IN 1 D), ORAL
     Route: 048
     Dates: start: 20050312

REACTIONS (6)
  - ALANINE AMINOTRANSFERASE INCREASED [None]
  - ASPARTATE AMINOTRANSFERASE INCREASED [None]
  - BLOOD ALKALINE PHOSPHATASE INCREASED [None]
  - BLOOD BILIRUBIN INCREASED [None]
  - HEPATOCELLULAR DAMAGE [None]
  - JAUNDICE [None]
